FAERS Safety Report 4951231-3 (Version None)
Quarter: 2006Q1

REPORT INFORMATION
  Report Type: 
  Country: None (occurrence: None)
  Receive Date: 20060317
  Receipt Date: 20060223
  Transmission Date: 20060701
  Serious: Yes (Hospitalization)
  Sender: FDA-Public Use
  Company Number: 200602679

PATIENT
  Age: 82 Year
  Sex: Male

DRUGS (2)
  1. LUMIGAN [Suspect]
     Indication: GLAUCOMA
     Dates: start: 20041001, end: 20041214
  2. ATENOLOL [Suspect]
     Indication: DRUG USE FOR UNKNOWN INDICATION
     Dosage: 25 MG DAILY PO
     Route: 048
     Dates: start: 19970623, end: 20041214

REACTIONS (1)
  - VENTRICULAR FIBRILLATION [None]
